FAERS Safety Report 15914390 (Version 3)
Quarter: 2019Q2

REPORT INFORMATION
  Report Type: Report from Study
  Country: DE (occurrence: DE)
  Receive Date: 20190204
  Receipt Date: 20190404
  Transmission Date: 20190711
  Serious: Yes (Life-Threatening)
  Sender: FDA-Public Use
  Company Number: DE-GILEAD-2019-0386856

PATIENT
  Sex: Male
  Weight: 100 kg

DRUGS (5)
  1. DOLUTEGRAVIR [Concomitant]
     Active Substance: DOLUTEGRAVIR
     Dates: start: 20160728, end: 20181201
  2. BICTEGRAVIR W/EMTRICITABINE/TENOFOVIR ALAFENAMIDE [Suspect]
     Active Substance: BICTEGRAVIR\EMTRICITABINE\TENOFOVIR ALAFENAMIDE
     Indication: HIV INFECTION
     Dosage: 1 DF, QD
     Route: 048
     Dates: start: 20181202, end: 20190123
  3. PANTOPRAZOL A [Concomitant]
     Route: 048
     Dates: start: 20131107
  4. EMTRICITABINE/TENOFOVIR ALAFENAMIDE [Concomitant]
     Active Substance: EMTRICITABINE\TENOFOVIR
     Dates: start: 20160728, end: 20181201
  5. RAMIPRIL. [Concomitant]
     Active Substance: RAMIPRIL
     Indication: HYPERTENSION
     Route: 048
     Dates: start: 20180312

REACTIONS (2)
  - Depression [Recovered/Resolved]
  - Nausea [Recovered/Resolved]

NARRATIVE: CASE EVENT DATE: 20181216
